FAERS Safety Report 11105793 (Version 1)
Quarter: 2015Q2

REPORT INFORMATION
  Report Type: Spontaneous
  Country: US (occurrence: None)
  Receive Date: 20150508
  Receipt Date: 20150508
  Transmission Date: 20150821
  Serious: Yes (Disabling)
  Sender: FDA-Public Use
  Company Number: None

PATIENT
  Age: 45 Year
  Sex: Male
  Weight: 100.7 kg

DRUGS (18)
  1. IC ATORVASTATIN 80MG - SUB FOR LIPITOR MYLAN [Suspect]
     Active Substance: ATORVASTATIN
     Indication: BLOOD CHOLESTEROL INCREASED
     Dosage: 80 MG, 1 PILL BEDTIME BY MOUTH
     Route: 048
     Dates: start: 20040801, end: 20150320
  2. SERTRALINE HCL TABS 100MG [Concomitant]
     Active Substance: SERTRALINE HYDROCHLORIDE
  3. METOPROLOL SUCCINATE. [Concomitant]
     Active Substance: METOPROLOL SUCCINATE
  4. ATORVASTATIN CALCIUM. [Concomitant]
     Active Substance: ATORVASTATIN CALCIUM
  5. MUPIROCIN CALCIUM CREAM [Concomitant]
     Active Substance: MUPIROCIN CALCIUM
  6. IC ATORVASTATIN 80MG - SUB FOR LIPITOR MYLAN [Suspect]
     Active Substance: ATORVASTATIN
     Indication: THROMBOSIS
     Dosage: 80 MG, 1 PILL BEDTIME BY MOUTH
     Route: 048
     Dates: start: 20040801, end: 20150320
  7. CEFPODOXIME PROXETIL. [Concomitant]
     Active Substance: CEFPODOXIME PROXETIL
  8. VITAMIN D [Concomitant]
     Active Substance: CHOLECALCIFEROL
  9. IC ATORVASTATIN 80MG - SUB FOR LIPITOR MYLAN [Suspect]
     Active Substance: ATORVASTATIN
     Indication: MYOCARDIAL INFARCTION
     Dosage: 80 MG, 1 PILL BEDTIME BY MOUTH
     Route: 048
     Dates: start: 20040801, end: 20150320
  10. AMLODIPINE BESYLATE 10 MG TABLET [Concomitant]
     Active Substance: AMLODIPINE BESYLATE
  11. ASPIRIN 81 MG [Concomitant]
     Active Substance: ASPIRIN
  12. FLUTICASONE FUROATE [Concomitant]
     Active Substance: FLUTICASONE FUROATE
  13. CHOLECALCIFEROL [Concomitant]
     Active Substance: CHOLECALCIFEROL
  14. CETIRIZINE HCL TABLETS [Concomitant]
     Active Substance: CETIRIZINE HYDROCHLORIDE
  15. SPIRONOLACTONE 25 MG TABLET RX NUMBER 05351 0646009 [Concomitant]
     Active Substance: SPIRONOLACTONE
  16. ALBUTEROL SULFATE. [Concomitant]
     Active Substance: ALBUTEROL SULFATE
     Dosage: ?
  17. OMEPRAZOLE MAGNESIUM. [Concomitant]
     Active Substance: OMEPRAZOLE MAGNESIUM
  18. GABAPENTIN 300 MG, CAPSULE [Concomitant]
     Active Substance: GABAPENTIN

REACTIONS (9)
  - Frequent bowel movements [None]
  - Pain in extremity [None]
  - Mental disorder [None]
  - Chondropathy [None]
  - Myalgia [None]
  - Confusional state [None]
  - Abdominal pain upper [None]
  - Fatigue [None]
  - Memory impairment [None]

NARRATIVE: CASE EVENT DATE: 20120501
